FAERS Safety Report 7744215-3 (Version None)
Quarter: 2011Q3

REPORT INFORMATION
  Report Type: 
  Country: None (occurrence: None)
  Receive Date: 20110831
  Receipt Date: 20110825
  Transmission Date: 20111222
  Serious: Yes (Other)
  Sender: FDA-Public Use
  Company Number: 2011SP040437

PATIENT
  Age: 53 Year
  Sex: Male

DRUGS (1)
  1. REMERON [Suspect]
     Dosage: PO
     Route: 048
     Dates: start: 20110501

REACTIONS (1)
  - DISTURBANCE IN ATTENTION [None]
